FAERS Safety Report 25792663 (Version 2)
Quarter: 2025Q4

REPORT INFORMATION
  Report Type: Report from Study
  Country: US (occurrence: US)
  Receive Date: 20250911
  Receipt Date: 20251017
  Transmission Date: 20260118
  Serious: Yes (Hospitalization)
  Sender: TAIHO ONCOLOGY INC
  Company Number: US-TAIHOP-2025-009657

PATIENT
  Age: 80 Year
  Sex: Male
  Weight: 66.22 kg

DRUGS (3)
  1. INQOVI [Suspect]
     Active Substance: CEDAZURIDINE\DECITABINE
     Indication: Polycythaemia vera
     Dosage: CEDAZURIDINE 100 MG AND DECITABINE 35 MG; DAYS 1-3; CYCLE UNKNOWN
     Route: 048
     Dates: start: 20250227
  2. INQOVI [Suspect]
     Active Substance: CEDAZURIDINE\DECITABINE
     Dosage: CEDAZURIDINE 100 MG AND DECITABINE 35 MG; DAYS 1-5; CYCLE UNKNOWN
     Route: 048
     Dates: start: 20250811
  3. VENCLEXTA [Suspect]
     Active Substance: VENETOCLAX
     Indication: Polycythaemia vera
     Dosage: DOSE, FREQUENCY AND CYCLE UNKNOWN

REACTIONS (4)
  - Pyrexia [Unknown]
  - Haemoglobin decreased [Unknown]
  - Haematocrit decreased [Unknown]
  - White blood cell count decreased [Unknown]
